FAERS Safety Report 4879494-3 (Version None)
Quarter: 2005Q4

REPORT INFORMATION
  Report Type: 
  Country: None (occurrence: None)
  Receive Date: 20051209
  Receipt Date: 20050930
  Transmission Date: 20060501
  Serious: Yes (Death, Other)
  Sender: FDA-Public Use
  Company Number: USA-2005-0021377

PATIENT
  Age: 23 Year
  Sex: Male
  Weight: 72.6 kg

DRUGS (3)
  1. OXYCONTIN [Suspect]
  2. OXYMORPHONE HYDROCHLORIDE [Suspect]
  3. ETHANOL (ETHANOL) [Suspect]

REACTIONS (2)
  - ACCIDENTAL OVERDOSE [None]
  - FOAMING AT MOUTH [None]
